FAERS Safety Report 8645710 (Version 2)
Quarter: 2013Q1

REPORT INFORMATION
  Report Type: Spontaneous
  Country: GR (occurrence: GR)
  Receive Date: 20120702
  Receipt Date: 20130122
  Transmission Date: 20140127
  Serious: Yes (Death, Hospitalization)
  Sender: FDA-Public Use
  Company Number: GR-B.I. PHARMACEUTICALS,INC./RIDGEFIELD-2012-EU-03315GB

PATIENT
  Age: 77 Year
  Sex: Male

DRUGS (5)
  1. PRADAXA [Suspect]
     Indication: ATRIAL FIBRILLATION
     Dosage: 220 MG
     Route: 048
     Dates: start: 201112, end: 201112
  2. UNSPECIFIED DRUG FOR DIABETES MELLITUS [Concomitant]
     Indication: DIABETES MELLITUS
     Dates: end: 201210
  3. UNSPECEFIED DRUG IN COPD [Concomitant]
     Indication: CHRONIC OBSTRUCTIVE PULMONARY DISEASE
     Dates: end: 201210
  4. TRIATEC [Concomitant]
     Indication: CARDIAC FAILURE
     Route: 048
     Dates: end: 201210
  5. INSPRA [Concomitant]
     Indication: CARDIAC FAILURE
     Dosage: 25 MG
     Route: 048
     Dates: end: 201210

REACTIONS (7)
  - Death [Fatal]
  - Pericarditis [Not Recovered/Not Resolved]
  - Pleural effusion [Not Recovered/Not Resolved]
  - Pleural haemorrhage [Not Recovered/Not Resolved]
  - Dyspnoea [Recovered/Resolved]
  - Pneumothorax [Unknown]
  - Road traffic accident [Recovered/Resolved]
